FAERS Safety Report 14209412 (Version 2)
Quarter: 2018Q1

REPORT INFORMATION
  Report Type: Spontaneous
  Country: US (occurrence: US)
  Receive Date: 20171121
  Receipt Date: 20180117
  Transmission Date: 20180508
  Serious: No
  Sender: FDA-Public Use
  Company Number: US-JNJFOC-20171033241

PATIENT
  Age: 22 Year
  Sex: Male
  Weight: 72.58 kg

DRUGS (5)
  1. UCERIS [Concomitant]
     Active Substance: BUDESONIDE
     Route: 048
     Dates: start: 20170717, end: 2017
  2. SIMPONI [Suspect]
     Active Substance: GOLIMUMAB
     Indication: COLITIS
     Route: 058
  3. CIPROFLOXACIN. [Concomitant]
     Active Substance: CIPROFLOXACIN
     Indication: POLYP
     Route: 048
     Dates: start: 201707, end: 201707
  4. METRONIDAZOLE. [Concomitant]
     Active Substance: METRONIDAZOLE
     Indication: POLYP
     Route: 048
     Dates: start: 201707, end: 201707
  5. PREDNISONE. [Concomitant]
     Active Substance: PREDNISONE
     Indication: POLYP
     Route: 048
     Dates: start: 201707, end: 201707

REACTIONS (6)
  - Muscle spasms [Recovered/Resolved]
  - Polyp [Recovered/Resolved]
  - Device malfunction [Unknown]
  - Accidental exposure to product [Recovered/Resolved]
  - Underdose [Unknown]
  - Colitis [Recovered/Resolved]

NARRATIVE: CASE EVENT DATE: 201705
